FAERS Safety Report 4527281-8 (Version None)
Quarter: 2004Q4

REPORT INFORMATION
  Report Type: 
  Country: None (occurrence: None)
  Receive Date: 20041130
  Receipt Date: 20040916
  Transmission Date: 20050328
  Serious: No
  Sender: FDA-Public Use
  Company Number: FABR-10780

PATIENT
  Age: 23 Year
  Sex: Male
  Weight: 57.6068 kg

DRUGS (3)
  1. FABRAZYME [Suspect]
     Indication: FABRY'S DISEASE
     Dosage: 70 MG Q2WKS IV
     Route: 042
     Dates: start: 20040822
  2. ALBUTEROL [Concomitant]
  3. TYLENOL (CAPLET) [Concomitant]

REACTIONS (2)
  - ASTHMA [None]
  - CHEST DISCOMFORT [None]
